FAERS Safety Report 10664317 (Version 1)
Quarter: 2014Q4

REPORT INFORMATION
  Report Type: Spontaneous
  Country: AR (occurrence: None)
  Receive Date: 20141217
  Receipt Date: 20141217
  Transmission Date: 20150529
  Serious: Yes (Other)
  Sender: FDA-Public Use
  Company Number: COL_18744_2014

PATIENT
  Sex: Male

DRUGS (1)
  1. COLGATE TOTAL ADVANCE WHITENING [Suspect]
     Active Substance: SODIUM FLUORIDE\TRICLOSAN
     Indication: PRODUCT USED FOR UNKNOWN INDICATION
     Route: 048

REACTIONS (4)
  - Wrong technique in drug usage process [None]
  - Exposure via ingestion [None]
  - Incorrect route of drug administration [None]
  - Vomiting [None]
